FAERS Safety Report 7120783-X (Version None)
Quarter: 2010Q4

REPORT INFORMATION
  Report Type: 
  Country: None (occurrence: None)
  Receive Date: 20101117
  Receipt Date: 20101117
  Transmission Date: 20110411
  Serious: No
  Sender: FDA-Public Use
  Company Number: None

PATIENT
  Sex: Male

DRUGS (4)
  1. LANTUS [Suspect]
     Indication: DIABETES MELLITUS
     Dosage: INJECT 30 UNITS DAILY
     Dates: start: 20100726
  2. HUMALOG KWIKPEN [Concomitant]
  3. PROPRANOLOL [Concomitant]
  4. UNITHROID [Concomitant]

REACTIONS (1)
  - DEVICE MALFUNCTION [None]
